FAERS Safety Report 13188255 (Version 1)
Quarter: 2017Q1

REPORT INFORMATION
  Report Type: Spontaneous
  Country: US (occurrence: US)
  Receive Date: 20170205
  Receipt Date: 20170205
  Transmission Date: 20170428
  Serious: Yes (Death)
  Sender: FDA-Public Use
  Company Number: None

PATIENT
  Sex: Male

DRUGS (14)
  1. COLACE [Concomitant]
     Active Substance: DOCUSATE SODIUM
  2. AMBIEN [Concomitant]
     Active Substance: ZOLPIDEM TARTRATE
  3. CLONIDINE. [Concomitant]
     Active Substance: CLONIDINE
  4. ALLOPURINOL. [Concomitant]
     Active Substance: ALLOPURINOL
  5. ACETAMINOPHEN. [Concomitant]
     Active Substance: ACETAMINOPHEN
  6. PROMETHAZINE [Concomitant]
     Active Substance: PROMETHAZINE\PROMETHAZINE HYDROCHLORIDE
  7. GUAIFENESIN. [Concomitant]
     Active Substance: GUAIFENESIN
  8. HEPARIN BOLUS DOSE [Suspect]
     Active Substance: HEPARIN SODIUM
  9. PREVACID [Concomitant]
     Active Substance: LANSOPRAZOLE
  10. COLCRYS [Concomitant]
     Active Substance: COLCHICINE
  11. LIQUID POTASSIUM CHLORIDE [Concomitant]
     Active Substance: POTASSIUM CHLORIDE
  12. NOVOLIN [Concomitant]
     Active Substance: INSULIN HUMAN
  13. MAGNESIUM [Concomitant]
     Active Substance: MAGNESIUM
  14. LASIX [Concomitant]
     Active Substance: FUROSEMIDE

REACTIONS (7)
  - Sepsis [None]
  - Cardiac arrest [None]
  - Procedural complication [None]
  - Disease complication [None]
  - Complication associated with device [None]
  - Dialysis related complication [None]
  - Clostridium difficile colitis [None]
